FAERS Safety Report 8045743-6 (Version None)
Quarter: 2012Q1

REPORT INFORMATION
  Report Type: 
  Country: None (occurrence: None)
  Receive Date: 20120113
  Receipt Date: 20120110
  Transmission Date: 20120608
  Serious: Yes (Other)
  Sender: FDA-Public Use
  Company Number: PHEH2011US009652

PATIENT
  Sex: Female
  Weight: 110 kg

DRUGS (6)
  1. DOXEPIN [Suspect]
     Indication: INSOMNIA
     Dosage: 3 MG, QHS
     Route: 048
     Dates: start: 20111116, end: 20111205
  2. VITAMIN D [Concomitant]
     Indication: VITAMIN D DEFICIENCY
     Dosage: 2000 IU, QD
     Route: 048
     Dates: start: 20111125
  3. CYMBALTA [Concomitant]
     Indication: DEPRESSION
     Dosage: 1 DF, QD
     Route: 048
     Dates: start: 20110705
  4. GILENYA [Suspect]
     Indication: MULTIPLE SCLEROSIS
     Dosage: 0.5 MG, QD
     Route: 048
     Dates: start: 20111110, end: 20111129
  5. GILENYA [Suspect]
     Dosage: 0.5 MG, QD
     Route: 048
     Dates: start: 20111208, end: 20111227
  6. LEVOTHYROXINE SODIUM [Concomitant]
     Indication: HYPOTHYROIDISM
     Dosage: 75 UG, QD
     Route: 048
     Dates: start: 20111012

REACTIONS (7)
  - FATIGUE [None]
  - SOMNOLENCE [None]
  - CELLULITIS [None]
  - OEDEMA PERIPHERAL [None]
  - JOINT SWELLING [None]
  - ARTHRALGIA [None]
  - PAIN IN EXTREMITY [None]
